FAERS Safety Report 23750973 (Version 1)
Quarter: 2024Q2

REPORT INFORMATION
  Report Type: Report from Study
  Country: US (occurrence: None)
  Receive Date: 20240417
  Receipt Date: 20240417
  Transmission Date: 20240715
  Serious: Yes (Other)
  Sender: FDA-Public Use
  Company Number: 2024A086629

PATIENT
  Sex: Female

DRUGS (1)
  1. LYNPARZA [Suspect]
     Active Substance: OLAPARIB
     Indication: Neoplasm recurrence
     Dosage: TOOK 1 DF AND THEN 2 DF AT NIGHT
     Route: 048
     Dates: start: 20230403, end: 20240408

REACTIONS (10)
  - Intervertebral disc protrusion [Unknown]
  - Pneumonitis [Unknown]
  - Injury [Unknown]
  - Scab [Unknown]
  - Back pain [Unknown]
  - Contusion [Unknown]
  - Scratch [Unknown]
  - Asthenia [Recovering/Resolving]
  - Vomiting [Unknown]
  - Product dose omission issue [Unknown]
